FAERS Safety Report 6266145-9 (Version None)
Quarter: 2009Q3

REPORT INFORMATION
  Report Type: 
  Country: None (occurrence: None)
  Receive Date: 20090713
  Receipt Date: 20090707
  Transmission Date: 20100115
  Serious: Yes (Hospitalization)
  Sender: FDA-Public Use
  Company Number: US-AVENTIS-200913520US

PATIENT
  Age: 54 Year
  Sex: Female

DRUGS (3)
  1. LANTUS [Suspect]
     Indication: DIABETES MELLITUS
     Route: 058
     Dates: start: 20060101
  2. LANTUS [Suspect]
     Dosage: DOSE: UNK
     Route: 058
  3. LANTUS [Suspect]
     Dosage: DOSE: UNK
     Route: 058

REACTIONS (4)
  - BLOOD GLUCOSE INCREASED [None]
  - HYPERGLYCAEMIA [None]
  - MALAISE [None]
  - MEDICATION ERROR [None]
